FAERS Safety Report 5409076-6 (Version None)
Quarter: 2007Q3

REPORT INFORMATION
  Report Type: 
  Country: None (occurrence: None)
  Receive Date: 20070806
  Receipt Date: 20070727
  Transmission Date: 20080115
  Serious: Yes (Other)
  Sender: FDA-Public Use
  Company Number: 2007SP015474

PATIENT
  Age: 72 Year
  Sex: Female

DRUGS (10)
  1. BETAMETHASONE [Suspect]
     Indication: POSTOPERATIVE CARE
     Dosage: ;OPH
     Route: 047
     Dates: start: 20070504
  2. NEOMYCIN [Suspect]
     Indication: POSTOPERATIVE CARE
     Dosage: ;OPH
     Route: 047
     Dates: start: 20070504
  3. ADRENALINE [Concomitant]
  4. CHLORAMPHENICOL [Concomitant]
  5. CYCLOPENTOLATE HCL [Concomitant]
  6. FLURBIPROFEN [Concomitant]
  7. LIDOCAINE [Concomitant]
  8. PHENYLEPHRINE [Concomitant]
  9. POVIDONE IODINE [Concomitant]
  10. VANCOMYCIN [Concomitant]

REACTIONS (1)
  - TOXIC ANTERIOR SEGMENT SYNDROME [None]
